FAERS Safety Report 9070399 (Version 1)
Quarter: 2013Q1

REPORT INFORMATION
  Report Type: Spontaneous
  Country: US (occurrence: US)
  Receive Date: 20130215
  Receipt Date: 20130215
  Transmission Date: 20140127
  Serious: No
  Sender: FDA-Public Use
  Company Number: US-009507513-1301USA011494

PATIENT
  Sex: 0
  Weight: 47.62 kg

DRUGS (2)
  1. NEXPLANON [Suspect]
     Indication: CONTRACEPTION
     Dosage: UNK
     Route: 059
     Dates: start: 20130123
  2. NEXPLANON [Suspect]
     Dosage: UNK
     Route: 059
     Dates: start: 20130123

REACTIONS (3)
  - Device difficult to use [Unknown]
  - Product quality issue [Unknown]
  - No adverse event [Unknown]
